FAERS Safety Report 24708512 (Version 10)
Quarter: 2025Q2

REPORT INFORMATION
  Report Type: Spontaneous
  Country: IT (occurrence: IT)
  Receive Date: 20241207
  Receipt Date: 20250609
  Transmission Date: 20250716
  Serious: Yes (Death, Life-Threatening, Hospitalization, Other)
  Sender: CELLTRION
  Company Number: IT-CELLTRION INC.-2024IT029698

PATIENT

DRUGS (59)
  1. RITUXIMAB [Suspect]
     Active Substance: RITUXIMAB
     Indication: Diffuse large B-cell lymphoma stage III
     Route: 042
     Dates: start: 20240430
  2. RITUXIMAB [Suspect]
     Active Substance: RITUXIMAB
     Dates: start: 20240415, end: 20240415
  3. EPCORITAMAB [Suspect]
     Active Substance: EPCORITAMAB
     Indication: Diffuse large B-cell lymphoma stage III
     Route: 058
     Dates: start: 20240502, end: 20240502
  4. EPCORITAMAB [Suspect]
     Active Substance: EPCORITAMAB
     Route: 058
     Dates: start: 20240510, end: 20240510
  5. EPCORITAMAB [Suspect]
     Active Substance: EPCORITAMAB
     Route: 058
     Dates: start: 20240517, end: 20240517
  6. CYCLOPHOSPHAMIDE [Suspect]
     Active Substance: CYCLOPHOSPHAMIDE
     Indication: Diffuse large B-cell lymphoma stage III
     Route: 042
     Dates: start: 20240430
  7. DOXORUBICIN [Suspect]
     Active Substance: DOXORUBICIN
     Indication: Diffuse large B-cell lymphoma stage III
     Route: 042
     Dates: start: 20240430
  8. VINCRISTINE [Suspect]
     Active Substance: VINCRISTINE
     Indication: Diffuse large B-cell lymphoma stage III
     Route: 042
     Dates: start: 20240430
  9. PREDNISONE [Suspect]
     Active Substance: PREDNISONE
     Indication: Diffuse large B-cell lymphoma stage III
     Dosage: 100 MG, EVERY 1 WEEK, RECOMMENDED CAP OF 2 MG)
     Route: 048
     Dates: start: 20240430, end: 20240506
  10. HYDROCORTISONE [Suspect]
     Active Substance: HYDROCORTISONE
     Indication: Diffuse large B-cell lymphoma stage III
     Route: 042
     Dates: start: 20240430, end: 20240430
  11. CHLORPHENIRAMINE MALEATE [Concomitant]
     Active Substance: CHLORPHENIRAMINE MALEATE
     Dates: start: 20240415, end: 20240415
  12. CHLORPHENIRAMINE MALEATE [Concomitant]
     Active Substance: CHLORPHENIRAMINE MALEATE
     Dates: start: 20240430, end: 20240517
  13. ACETAMINOPHEN [Concomitant]
     Active Substance: ACETAMINOPHEN
     Dates: start: 20240402
  14. ACETAMINOPHEN [Concomitant]
     Active Substance: ACETAMINOPHEN
     Route: 048
     Dates: start: 20240430, end: 20240517
  15. ACETAMINOPHEN [Concomitant]
     Active Substance: ACETAMINOPHEN
     Route: 048
     Dates: start: 20240502
  16. DEXAMETHASONE [Concomitant]
     Active Substance: DEXAMETHASONE
     Dates: start: 20240409, end: 20240430
  17. DEXAMETHASONE [Concomitant]
     Active Substance: DEXAMETHASONE
     Route: 042
     Dates: start: 20240502, end: 20240502
  18. DEXAMETHASONE [Concomitant]
     Active Substance: DEXAMETHASONE
     Route: 042
     Dates: start: 20240509, end: 20240519
  19. HYDROCORTISONE [Concomitant]
     Active Substance: HYDROCORTISONE
     Dates: start: 20240415, end: 20240430
  20. LEVOFLOXACIN [Concomitant]
     Active Substance: LEVOFLOXACIN
     Dates: start: 20240506, end: 20240513
  21. MOVICOL [Concomitant]
     Active Substance: POLYETHYLENE GLYCOL 3350\POTASSIUM CHLORIDE\SODIUM BICARBONATE\SODIUM CHLORIDE
     Dates: start: 20240402, end: 20240419
  22. NALOXONE HYDROCHLORIDE\OXYCODONE HYDROCHLORIDE [Concomitant]
     Active Substance: NALOXONE HYDROCHLORIDE\OXYCODONE HYDROCHLORIDE
     Dates: start: 20240402, end: 20240419
  23. ZANUBRUTINIB [Concomitant]
     Active Substance: ZANUBRUTINIB
     Dates: start: 20240408, end: 20240516
  24. URSODIOL [Concomitant]
     Active Substance: URSODIOL
     Dates: start: 20240402, end: 20240418
  25. ALLOPURINOL [Concomitant]
     Active Substance: ALLOPURINOL
     Dates: start: 20240402
  26. ACYCLOVIR [Concomitant]
     Active Substance: ACYCLOVIR
     Dates: start: 20240402
  27. ENOXAPARIN [Concomitant]
     Active Substance: ENOXAPARIN
     Dates: start: 20240402
  28. BACTRIM [Concomitant]
     Active Substance: SULFAMETHOXAZOLE\TRIMETHOPRIM
     Dates: start: 20240403
  29. FOLIC ACID [Concomitant]
     Active Substance: FOLIC ACID
     Dates: start: 20240406
  30. MORPHINE HYDROCHLORIDE [Concomitant]
     Active Substance: MORPHINE HYDROCHLORIDE
     Dates: start: 20240408, end: 20240411
  31. PANTOPRAZOLE [Concomitant]
     Active Substance: PANTOPRAZOLE
     Dates: start: 20240408
  32. FENTANYL [Concomitant]
     Active Substance: FENTANYL
     Dates: start: 20240409
  33. FLUCONAZOLE [Concomitant]
     Active Substance: FLUCONAZOLE
     Dates: start: 20240415, end: 20240415
  34. NALDEMEDINE [Concomitant]
     Active Substance: NALDEMEDINE
     Dates: start: 20240409, end: 20240419
  35. SENNOSIDES [Concomitant]
     Active Substance: SENNOSIDES
     Dates: start: 20240409, end: 20240418
  36. LYRICA [Concomitant]
     Active Substance: PREGABALIN
     Dates: start: 20240410
  37. KETOROLAC TROMETHAMINE [Concomitant]
     Active Substance: KETOROLAC TROMETHAMINE
     Dates: start: 20240411, end: 20240414
  38. RASBURICASE [Concomitant]
     Active Substance: RASBURICASE
     Dates: start: 20240412, end: 20240412
  39. PALONOSETRON [Concomitant]
     Active Substance: PALONOSETRON
     Dates: start: 20240412, end: 20240412
  40. FILGRASTIM [Concomitant]
     Active Substance: FILGRASTIM
     Dates: start: 20240424, end: 20240426
  41. NALDEMEDINE TOSYLATE [Concomitant]
     Active Substance: NALDEMEDINE TOSYLATE
     Dates: start: 20240424
  42. NALOXONE HYDROCHLORIDE\OXYCODONE HYDROCHLORIDE [Concomitant]
     Active Substance: NALOXONE HYDROCHLORIDE\OXYCODONE HYDROCHLORIDE
     Dates: start: 20240424
  43. FUROSEMIDE [Concomitant]
     Active Substance: FUROSEMIDE
     Dates: start: 20240429, end: 20240429
  44. PREDNISONE [Concomitant]
     Active Substance: PREDNISONE
     Route: 048
     Dates: start: 20240430, end: 20240506
  45. ERYTHROPOIETIN [Concomitant]
     Active Substance: ERYTHROPOIETIN
     Dates: start: 20240507
  46. LEVOFLOXACIN [Concomitant]
     Active Substance: LEVOFLOXACIN
  47. DEXAMETHASONE PHOSPHATE [Concomitant]
     Active Substance: DEXAMETHASONE PHOSPHATE
     Dates: start: 20240502
  48. CANRENOATE POTASSIUM [Concomitant]
     Active Substance: CANRENOATE POTASSIUM
  49. OLICLINOMEL [AMINO ACIDS NOS;CARBOHYDRATES NOS;ELECTROLYTES NOS;LIPIDS [Concomitant]
  50. LEVOSULPIRIDE [Concomitant]
     Active Substance: LEVOSULPIRIDE
  51. GLUCOSE;POTASSIUM CHLORIDE [Concomitant]
  52. TAMSULOSIN HYDROCHLORIDE [Concomitant]
     Active Substance: TAMSULOSIN HYDROCHLORIDE
  53. TRAMADOL [Concomitant]
     Active Substance: TRAMADOL
  54. ONDANSETRON [Concomitant]
     Active Substance: ONDANSETRON
  55. NEOSTIGMINE METHYLSULFATE [Concomitant]
     Active Substance: NEOSTIGMINE METHYLSULFATE
  56. DELORAZEPAM [Concomitant]
     Active Substance: DELORAZEPAM
  57. DEXMEDETOMIDINE HYDROCHLORIDE [Concomitant]
     Active Substance: DEXMEDETOMIDINE HYDROCHLORIDE
  58. TALOFEN [Concomitant]
     Active Substance: PROMAZINE HYDROCHLORIDE
  59. CYTARABINE [Concomitant]
     Active Substance: CYTARABINE
     Indication: Renal ischaemia
     Route: 042

REACTIONS (3)
  - Disease progression [Fatal]
  - Renal ischaemia [Not Recovered/Not Resolved]
  - Febrile neutropenia [Recovered/Resolved]

NARRATIVE: CASE EVENT DATE: 20240509
